FAERS Safety Report 23118570 (Version 6)
Quarter: 2023Q4

REPORT INFORMATION
  Report Type: Report from Study
  Country: US (occurrence: US)
  Receive Date: 20231028
  Receipt Date: 20231211
  Transmission Date: 20240109
  Serious: No
  Sender: FDA-Public Use
  Company Number: US-002147023-NVSC2023US229494

PATIENT
  Sex: Female

DRUGS (5)
  1. KESIMPTA [Suspect]
     Active Substance: OFATUMUMAB
     Indication: Multiple sclerosis
     Dosage: 20 MG, QMO
     Route: 058
  2. KESIMPTA [Suspect]
     Active Substance: OFATUMUMAB
     Dosage: 20 MG, QMO ((1 INJECTOR) MONTHLY STARTING AT WEEK 4 AS DIRECTED)
     Route: 058
  3. PROPRANOLOL HYDROCHLORIDE [Concomitant]
     Active Substance: PROPRANOLOL HYDROCHLORIDE
     Indication: Product used for unknown indication
     Dosage: UNK
     Route: 065
  4. DIFLUCAN DERM [Concomitant]
     Indication: Product used for unknown indication
     Dosage: UNK
     Route: 065
  5. MONISTAT 3 [Concomitant]
     Active Substance: MICONAZOLE NITRATE
     Indication: Product used for unknown indication
     Dosage: UNK
     Route: 065

REACTIONS (17)
  - Gait disturbance [Unknown]
  - Fatigue [Unknown]
  - Muscle spasms [Unknown]
  - Upper respiratory tract infection [Unknown]
  - Oropharyngeal pain [Unknown]
  - Tonsillitis [Unknown]
  - Chromaturia [Unknown]
  - Injection site bruising [Unknown]
  - Decreased appetite [Unknown]
  - Influenza like illness [Unknown]
  - Flushing [Unknown]
  - Headache [Unknown]
  - Mood altered [Unknown]
  - Vomiting [Unknown]
  - Pain [Unknown]
  - Respiratory tract infection [Unknown]
  - Fungal infection [Unknown]
